FAERS Safety Report 7386394-6 (Version None)
Quarter: 2011Q1

REPORT INFORMATION
  Report Type: 
  Country: None (occurrence: None)
  Receive Date: 20110329
  Receipt Date: 20110329
  Transmission Date: 20110831
  Serious: Yes (Hospitalization)
  Sender: FDA-Public Use
  Company Number: None

PATIENT
  Age: 67 Year
  Sex: Female
  Weight: 50 kg

DRUGS (1)
  1. XGEVA -DENOSUMAB 120MG AMGEN [Suspect]
     Indication: METASTASES TO BONE
     Dosage: 120MG ONCE SQ
     Route: 058

REACTIONS (1)
  - URINARY RETENTION [None]
